FAERS Safety Report 23659479 (Version 1)
Quarter: 2024Q1

REPORT INFORMATION
  Report Type: Spontaneous
  Country: US (occurrence: US)
  Receive Date: 20240321
  Receipt Date: 20240321
  Transmission Date: 20240410
  Serious: Yes (Hospitalization)
  Sender: FDA-Public Use
  Company Number: US-AMGEN-USASP2024056514

PATIENT
  Sex: Male

DRUGS (2)
  1. RIABNI [Suspect]
     Active Substance: RITUXIMAB-ARRX
     Indication: B-cell lymphoma
     Dosage: 700 MILLIGRAM, Q3MO
     Route: 042
  2. RIABNI [Suspect]
     Active Substance: RITUXIMAB-ARRX
     Dosage: 700 MILLIGRAM, Q3MO
     Route: 042

REACTIONS (2)
  - Unevaluable event [Unknown]
  - Mastitis [Recovered/Resolved]

NARRATIVE: CASE EVENT DATE: 20240219
